FAERS Safety Report 21684602 (Version 2)
Quarter: 2022Q4

REPORT INFORMATION
  Report Type: Spontaneous
  Country: US (occurrence: US)
  Receive Date: 20221205
  Receipt Date: 20221213
  Transmission Date: 20230113
  Serious: Yes (Death)
  Sender: FDA-Public Use
  Company Number: US-LUNDBECK-DKLU3055615

PATIENT
  Age: 17 Year
  Sex: Male

DRUGS (3)
  1. SABRIL [Suspect]
     Active Substance: VIGABATRIN
     Indication: Hypoxic-ischaemic encephalopathy
     Route: 048
     Dates: start: 201612
  2. SABRIL [Suspect]
     Active Substance: VIGABATRIN
     Indication: Cerebral palsy
  3. SABRIL [Suspect]
     Active Substance: VIGABATRIN
     Indication: Infantile spasms

REACTIONS (1)
  - Pneumonia [Fatal]
